FAERS Safety Report 19103335 (Version 2)
Quarter: 2021Q3

REPORT INFORMATION
  Report Type: Spontaneous
  Country: US (occurrence: US)
  Receive Date: 20210407
  Receipt Date: 20210913
  Transmission Date: 20211014
  Serious: No
  Sender: FDA-Public Use
  Company Number: US-MYLANLABS-2021M1019057

PATIENT
  Sex: Male
  Weight: 95 kg

DRUGS (1)
  1. PROCTOFOAM HC [Suspect]
     Active Substance: HYDROCORTISONE ACETATE\PRAMOXINE HYDROCHLORIDE
     Indication: DIARRHOEA
     Dosage: 1 PERCENT, QD (ONCE DAILY AT BEDTIME)
     Route: 054

REACTIONS (2)
  - Product use in unapproved indication [Unknown]
  - Product leakage [Unknown]
